FAERS Safety Report 7819674-8 (Version None)
Quarter: 2011Q4

REPORT INFORMATION
  Report Type: 
  Country: None (occurrence: None)
  Receive Date: 20111018
  Receipt Date: 20100915
  Transmission Date: 20120403
  Serious: No
  Sender: FDA-Public Use
  Company Number: US-ASTRAZENECA-2010SE43790

PATIENT
  Age: 66 Year
  Sex: Female
  Weight: 95.3 kg

DRUGS (1)
  1. SYMBICORT [Suspect]
     Indication: ASTHMA
     Dosage: 320UG TWO TIMES A DAY
     Route: 055

REACTIONS (3)
  - OROPHARYNGEAL PAIN [None]
  - EAR INFECTION [None]
  - DYSPHONIA [None]
